FAERS Safety Report 20473420 (Version 2)
Quarter: 2023Q2

REPORT INFORMATION
  Report Type: Other
  Country: US (occurrence: None)
  Receive Date: 20220215
  Receipt Date: 20230414
  Transmission Date: 20230722
  Serious: No
  Sender: FDA-Public Use
  Company Number: US-ROCHE-3021145

PATIENT
  Age: 52 Year
  Sex: Female

DRUGS (1)
  1. OCREVUS [Suspect]
     Active Substance: OCRELIZUMAB
     Indication: Primary progressive multiple sclerosis
     Dosage: 13/DEC/2019, 29/DEC/2021.27/JAN/2023, 07/NOV/2018, 08/JUN/2018, 23/DEC/2022, 28/DEC/2020
     Route: 042
     Dates: start: 20180608

REACTIONS (2)
  - COVID-19 [Recovered/Resolved]
  - Cough [Not Recovered/Not Resolved]

NARRATIVE: CASE EVENT DATE: 20230101
